FAERS Safety Report 4761157-6 (Version None)
Quarter: 2005Q3

REPORT INFORMATION
  Report Type: 
  Country: None (occurrence: None)
  Receive Date: 20050902
  Receipt Date: 20050902
  Transmission Date: 20060218
  Serious: Yes (Other)
  Sender: FDA-Public Use
  Company Number: None

PATIENT
  Age: 52 Year
  Sex: Female
  Weight: 72.1219 kg

DRUGS (1)
  1. HABITROL [Suspect]
     Indication: SMOKING CESSATION THERAPY
     Dosage: 21 MG   1/DAY   CUTANEOUS  (DURATION: 1/DAY FOR 7 DAYS)
     Route: 003

REACTIONS (6)
  - ARRHYTHMIA [None]
  - CHEST DISCOMFORT [None]
  - CHEST PAIN [None]
  - LOSS OF CONSCIOUSNESS [None]
  - SYNCOPE VASOVAGAL [None]
  - VOMITING [None]
